FAERS Safety Report 24313111 (Version 1)
Quarter: 2024Q3

REPORT INFORMATION
  Report Type: Spontaneous
  Country: US (occurrence: US)
  Receive Date: 20240912
  Receipt Date: 20240912
  Transmission Date: 20241017
  Serious: Yes (Other)
  Sender: CSL BEHRING
  Company Number: US-BEH-2024178409

PATIENT
  Age: 75 Year
  Sex: Male

DRUGS (6)
  1. HUMAN IMMUNOGLOBULIN G [Suspect]
     Active Substance: HUMAN IMMUNOGLOBULIN G
     Indication: Myasthenia gravis
     Dosage: UNK
     Route: 042
  2. HUMAN IMMUNOGLOBULIN G [Suspect]
     Active Substance: HUMAN IMMUNOGLOBULIN G
     Indication: Hypogammaglobulinaemia
  3. PREDNISOLONE [Suspect]
     Active Substance: PREDNISOLONE
     Indication: Myasthenia gravis
     Dosage: 20 MG, QD
     Route: 065
  4. PREDNISOLONE [Suspect]
     Active Substance: PREDNISOLONE
     Indication: Hypogammaglobulinaemia
  5. MYCOPHENOLIC ACID [Suspect]
     Active Substance: MYCOPHENOLIC ACID
     Indication: Myasthenia gravis
     Dosage: 1000 MG, BID
     Route: 065
  6. MYCOPHENOLIC ACID [Suspect]
     Active Substance: MYCOPHENOLIC ACID
     Indication: Hypogammaglobulinaemia
     Dosage: 1500 MG, BID
     Route: 065

REACTIONS (1)
  - Progressive multifocal leukoencephalopathy [Unknown]
